FAERS Safety Report 24425034 (Version 2)
Quarter: 2024Q4

REPORT INFORMATION
  Report Type: Report from Study
  Country: CA (occurrence: CA)
  Receive Date: 20241010
  Receipt Date: 20241023
  Transmission Date: 20250114
  Serious: Yes (Death, Hospitalization, Other)
  Sender: HLS THERAPEUTICS
  Company Number: CA-HLS-202402473

PATIENT
  Sex: Male

DRUGS (1)
  1. CLOZARIL [Suspect]
     Active Substance: CLOZAPINE
     Indication: Product used for unknown indication
     Route: 048
     Dates: start: 20000301

REACTIONS (4)
  - Asphyxia [Unknown]
  - Seizure [Unknown]
  - Death [Fatal]
  - Hypotension [Unknown]
